FAERS Safety Report 11322188 (Version 1)
Quarter: 2015Q3

REPORT INFORMATION
  Report Type: Spontaneous
  Country: GB (occurrence: GB)
  Receive Date: 20150729
  Receipt Date: 20150729
  Transmission Date: 20151125
  Serious: Yes (Other)
  Sender: FDA-Public Use
  Company Number: GB-ALLERGAN-1514307US

PATIENT
  Age: 59 Year
  Sex: Male

DRUGS (1)
  1. OZURDEX [Suspect]
     Active Substance: DEXAMETHASONE
     Indication: RETINAL VEIN OCCLUSION
     Dosage: 0.7 MG, SINGLE
     Route: 031
     Dates: start: 20150424, end: 20150424

REACTIONS (3)
  - Endophthalmitis [Unknown]
  - Blindness [Unknown]
  - Eye swelling [Unknown]

NARRATIVE: CASE EVENT DATE: 20150427
